FAERS Safety Report 10142533 (Version 1)
Quarter: 2014Q2

REPORT INFORMATION
  Report Type: Spontaneous
  Country: FR (occurrence: FR)
  Receive Date: 20140430
  Receipt Date: 20140430
  Transmission Date: 20141212
  Serious: Yes (Hospitalization)
  Sender: FDA-Public Use
  Company Number: FR-009507513-1404FRA013198

PATIENT
  Age: 33 Year
  Sex: Female

DRUGS (5)
  1. AERIUS [Suspect]
     Route: 048
  2. LOXEN [Suspect]
     Dosage: UNK
     Route: 048
     Dates: start: 20140121, end: 20140317
  3. AMLOR [Suspect]
     Dosage: UNK
     Dates: start: 20140318, end: 20140326
  4. ACETAMINOPHEN [Suspect]
     Dosage: UNK
     Route: 048
     Dates: start: 20140209, end: 20140318
  5. TARDYFERON [Suspect]
     Dosage: UNK
     Route: 048
     Dates: start: 20140214, end: 20140326

REACTIONS (1)
  - Hypersensitivity vasculitis [Recovering/Resolving]
